FAERS Safety Report 23584195 (Version 2)
Quarter: 2024Q1

REPORT INFORMATION
  Report Type: Report from Study
  Country: US (occurrence: US)
  Receive Date: 20240301
  Receipt Date: 20240313
  Transmission Date: 20240410
  Serious: Yes (Other)
  Sender: FDA-Public Use
  Company Number: US-Merck Healthcare KGaA-2024010278

PATIENT
  Sex: Female

DRUGS (2)
  1. MAVENCLAD [Suspect]
     Active Substance: CLADRIBINE
     Indication: Relapsing-remitting multiple sclerosis
     Dosage: YEAR ONE MONTH ONE THERAPY
     Route: 048
     Dates: start: 20230411
  2. MAVENCLAD [Suspect]
     Active Substance: CLADRIBINE
     Dosage: YEAR ONE MONTH TWO THERAPY
     Route: 048
     Dates: start: 20230510

REACTIONS (9)
  - Joint swelling [Unknown]
  - Arthralgia [Unknown]
  - Chondropathy [Unknown]
  - Synovial disorder [Unknown]
  - Synovial cyst [Unknown]
  - Hypertension [Unknown]
  - Somnolence [Unknown]
  - Dizziness [Unknown]
  - Blood pressure decreased [Unknown]
